FAERS Safety Report 6958067-2 (Version None)
Quarter: 2010Q3

REPORT INFORMATION
  Report Type: 
  Country: None (occurrence: None)
  Receive Date: 20100830
  Receipt Date: 20100830
  Transmission Date: 20110219
  Serious: No
  Sender: FDA-Public Use
  Company Number: None

PATIENT
  Age: 36 Year
  Sex: Male
  Weight: 91.6266 kg

DRUGS (2)
  1. ATRIPLA [Suspect]
     Indication: ANTI-INFECTIVE THERAPY
     Dosage: 1 PILL DAILY PO
     Route: 048
     Dates: start: 20090809, end: 20100831
  2. ATRIPLA [Suspect]
     Indication: HIV INFECTION
     Dosage: 1 PILL DAILY PO
     Route: 048
     Dates: start: 20090809, end: 20100831

REACTIONS (4)
  - BREAST MASS [None]
  - BREAST PAIN [None]
  - GALACTORRHOEA [None]
  - GYNAECOMASTIA [None]
